FAERS Safety Report 9275769 (Version 1)
Quarter: 2013Q2

REPORT INFORMATION
  Report Type: Spontaneous
  Country: FR (occurrence: FR)
  Receive Date: 20130507
  Receipt Date: 20130507
  Transmission Date: 20140414
  Serious: Yes (Hospitalization)
  Sender: FDA-Public Use
  Company Number: FR-SANOFI-AVENTIS-2013SA044322

PATIENT
  Age: 48 Year
  Sex: Male

DRUGS (5)
  1. PLAQUENIL [Suspect]
     Indication: SARCOIDOSIS
     Route: 048
     Dates: start: 201203
  2. CORTANCYL [Suspect]
     Indication: SARCOIDOSIS
     Route: 048
     Dates: start: 2012
  3. CRESTOR [Concomitant]
     Indication: HYPERCHOLESTEROLAEMIA
     Dosage: STRENGTH: 5 MG
     Route: 048
  4. ACTONEL [Concomitant]
     Indication: OSTEOPOROSIS
     Dosage: STRENGTH: 35 MG
     Route: 048
  5. STILNOX [Concomitant]
     Indication: SLEEP DISORDER
     Dosage: STRENGTH: 10 MG
     Route: 048
     Dates: start: 201009

REACTIONS (2)
  - Demyelinating polyneuropathy [Not Recovered/Not Resolved]
  - Hypoaesthesia [Not Recovered/Not Resolved]
